FAERS Safety Report 6496845-7 (Version None)
Quarter: 2009Q4

REPORT INFORMATION
  Report Type: 
  Country: None (occurrence: None)
  Receive Date: 20091125
  Receipt Date: 20090513
  Transmission Date: 20100525
  Serious: Yes (Hospitalization)
  Sender: FDA-Public Use
  Company Number: 2009BH006577

PATIENT
  Sex: Male

DRUGS (9)
  1. DIANEAL [Suspect]
     Indication: RENAL FAILURE CHRONIC
     Dosage: IP
     Route: 033
     Dates: start: 20000101
  2. DIANEAL [Suspect]
     Indication: RENAL FAILURE CHRONIC
     Dosage: IP
     Route: 033
     Dates: start: 20000101
  3. IRON [Concomitant]
  4. EPOGEN [Concomitant]
  5. METOPROLOL [Concomitant]
  6. CALCIUM [Concomitant]
  7. POTASSIUM [Concomitant]
  8. ASPIRIN [Concomitant]
  9. INSULIN [Concomitant]

REACTIONS (1)
  - PERITONITIS BACTERIAL [None]
